FAERS Safety Report 9116859 (Version 2)
Quarter: 2013Q2

REPORT INFORMATION
  Report Type: Spontaneous
  Country: DE (occurrence: DE)
  Receive Date: 20130225
  Receipt Date: 20130502
  Transmission Date: 20140414
  Serious: Yes (Hospitalization, Other)
  Sender: FDA-Public Use
  Company Number: PHHY2013DE017989

PATIENT
  Age: 53 Year
  Sex: Male
  Weight: 80 kg

DRUGS (5)
  1. TASIGNA [Suspect]
     Indication: CHRONIC MYELOID LEUKAEMIA
     Dosage: 300 MG, BID
     Route: 048
     Dates: start: 20130104, end: 20130327
  2. PANTOPRAZOLE [Concomitant]
     Indication: GASTRIC DISORDER
     Dosage: 40 MG, QD
     Dates: start: 20130103
  3. PANTOPRAZOLE [Concomitant]
     Indication: PROPHYLAXIS
  4. ALLOPURINOL [Concomitant]
     Dates: start: 20130103
  5. URALYT U [Concomitant]

REACTIONS (6)
  - Acute myocardial infarction [Recovering/Resolving]
  - Dyspnoea [Recovering/Resolving]
  - Chest discomfort [Recovering/Resolving]
  - Chest pain [Recovering/Resolving]
  - Coronary artery disease [Unknown]
  - Coronary artery stenosis [Unknown]
